FAERS Safety Report 16277905 (Version 2)
Quarter: 2019Q2

REPORT INFORMATION
  Report Type: Report from Study
  Country: CO (occurrence: CO)
  Receive Date: 20190506
  Receipt Date: 20190522
  Transmission Date: 20190711
  Serious: Yes (Hospitalization)
  Sender: FDA-Public Use
  Company Number: PHHY2019CO102681

PATIENT
  Sex: Female

DRUGS (5)
  1. LOSARTAN. [Suspect]
     Active Substance: LOSARTAN
     Indication: HYPERTENSION
     Dosage: 50 MG, Q12H
     Route: 048
  2. REVOLADE [Suspect]
     Active Substance: ELTROMBOPAG
     Indication: IMMUNE THROMBOCYTOPENIC PURPURA
     Dosage: 50 MG, QD
     Route: 048
     Dates: start: 20150408
  3. REVOLADE [Suspect]
     Active Substance: ELTROMBOPAG
     Dosage: 25 MG, QD
     Route: 048
  4. LEVOTHYROXINE. [Concomitant]
     Active Substance: LEVOTHYROXINE
     Indication: THYROID DISORDER
     Dosage: 75 MG, QD
     Route: 048
  5. 9 MONTHS FOLIC ACID [Concomitant]
     Dosage: UNK, QD
     Route: 048

REACTIONS (8)
  - Blood creatine increased [Unknown]
  - Back pain [Recovered/Resolved]
  - Gastroenteritis bacterial [Recovered/Resolved]
  - Diarrhoea [Unknown]
  - Stress [Unknown]
  - Dehydration [Unknown]
  - Herpes virus infection [Not Recovered/Not Resolved]
  - Pain [Unknown]
